FAERS Safety Report 7790941-X (Version None)
Quarter: 2011Q3

REPORT INFORMATION
  Report Type: 
  Country: None (occurrence: None)
  Receive Date: 20110930
  Receipt Date: 20110930
  Transmission Date: 20111222
  Serious: Yes (Death, Life-Threatening, Hospitalization, Disabling, Congenital Anomaly, Other)
  Sender: FDA-Public Use
  Company Number: None

PATIENT
  Age: 52 Year
  Sex: Female
  Weight: 52.163 kg

DRUGS (1)
  1. BUPROPION HCL [Suspect]
     Indication: BIPOLAR I DISORDER
     Dosage: 150MG
     Route: 048
     Dates: start: 20110321, end: 20110423

REACTIONS (3)
  - PRODUCT SUBSTITUTION ISSUE [None]
  - HEARING IMPAIRED [None]
  - TINNITUS [None]
